FAERS Safety Report 8235147-5 (Version None)
Quarter: 2012Q1

REPORT INFORMATION
  Report Type: 
  Country: None (occurrence: None)
  Receive Date: 20120326
  Receipt Date: 20120314
  Transmission Date: 20120608
  Serious: Yes (Death, Life-Threatening)
  Sender: FDA-Public Use
  Company Number: GB-GILEAD-2011-0047898

PATIENT
  Sex: Female

DRUGS (26)
  1. ASPIRIN [Concomitant]
     Dosage: 1IUAX PER DAY
     Route: 048
  2. DENOPAMINE [Concomitant]
     Dosage: 40MG PER DAY
     Route: 048
  3. PIMOBENDAN [Concomitant]
     Dosage: 5MG PER DAY
     Route: 048
  4. PIMOBENDAN [Concomitant]
     Dosage: 5MG PER DAY
     Route: 048
  5. TADALAFIL [Concomitant]
     Route: 048
  6. FLOLAN [Suspect]
     Route: 042
  7. FLOLAN [Suspect]
     Route: 042
  8. ASPIRIN [Concomitant]
     Dosage: 1IUAX PER DAY
     Route: 048
  9. METILDIGOXIN [Concomitant]
     Dosage: 1IUAX PER DAY
     Route: 048
  10. METILDIGOXIN [Concomitant]
     Dosage: 1IUAX PER DAY
     Route: 048
  11. DENOPAMINE [Concomitant]
     Dosage: 40MG PER DAY
     Route: 048
  12. FLOLAN [Suspect]
     Route: 042
     Dates: start: 20081201
  13. SPIRONOLACTONE [Concomitant]
     Dosage: 25MG PER DAY
     Route: 048
  14. PIMOBENDAN [Concomitant]
     Dosage: 5MG PER DAY
     Route: 048
  15. AMBRISENTAN [Suspect]
     Route: 048
  16. FLOLAN [Suspect]
     Route: 042
     Dates: start: 20080101
  17. METILDIGOXIN [Concomitant]
     Dosage: 1IUAX PER DAY
     Route: 048
  18. FUROSEMIDE [Concomitant]
     Dosage: 40MG PER DAY
     Route: 048
  19. FUROSEMIDE [Concomitant]
     Dosage: 40MG PER DAY
     Route: 048
  20. SPIRONOLACTONE [Concomitant]
     Dosage: 25MG PER DAY
     Route: 048
  21. TADALAFIL [Concomitant]
     Route: 048
  22. FUROSEMIDE [Concomitant]
     Dosage: 40MG PER DAY
     Route: 048
  23. SPIRONOLACTONE [Concomitant]
     Dosage: 25MG PER DAY
     Route: 048
  24. DENOPAMINE [Concomitant]
     Dosage: 40MG PER DAY
     Route: 048
  25. ASPIRIN [Concomitant]
     Dosage: 1IUAX PER DAY
     Route: 048
  26. TADALAFIL [Concomitant]
     Route: 048

REACTIONS (16)
  - RIGHT VENTRICULAR FAILURE [None]
  - SINUS RHYTHM [None]
  - BUNDLE BRANCH BLOCK RIGHT [None]
  - CORONARY ARTERY STENOSIS [None]
  - PNEUMONIA [None]
  - OEDEMA PERIPHERAL [None]
  - GENERAL PHYSICAL HEALTH DETERIORATION [None]
  - ELECTROCARDIOGRAM ST SEGMENT DEPRESSION [None]
  - DILATATION VENTRICULAR [None]
  - CORONARY ARTERY DISEASE [None]
  - BREATH SOUNDS ABNORMAL [None]
  - PULMONARY ARTERY DILATATION [None]
  - CARDIAC FAILURE [None]
  - PULMONARY HYPERTENSION [None]
  - CARDIAC MURMUR [None]
  - PULMONARY ALVEOLAR HAEMORRHAGE [None]
